FAERS Safety Report 11756928 (Version 1)
Quarter: 2015Q4

REPORT INFORMATION
  Report Type: Spontaneous
  Country: AU (occurrence: AU)
  Receive Date: 20151120
  Receipt Date: 20151120
  Transmission Date: 20160304
  Serious: Yes (Death, Other)
  Sender: FDA-Public Use
  Company Number: AU-PFIZER INC-2015382325

PATIENT
  Age: 15 Year
  Sex: Female

DRUGS (4)
  1. VFEND [Suspect]
     Active Substance: VORICONAZOLE
     Indication: FUNGAL INFECTION
     Dosage: 6MG/KG, 2X/DAY
     Route: 042
  2. AMBISOME [Suspect]
     Active Substance: AMPHOTERICIN B
  3. VFEND [Suspect]
     Active Substance: VORICONAZOLE
     Indication: FUNGAL INFECTION
     Dosage: 6MG/KG, 2X/DAY
     Route: 048
  4. CASPOFUNGIN [Concomitant]
     Active Substance: CASPOFUNGIN

REACTIONS (5)
  - Drug level below therapeutic [Unknown]
  - General physical health deterioration [Fatal]
  - Liver function test abnormal [Unknown]
  - Skin mass [Unknown]
  - Acute kidney injury [Unknown]
